FAERS Safety Report 23859039 (Version 1)
Quarter: 2024Q2

REPORT INFORMATION
  Report Type: Spontaneous
  Country: US (occurrence: None)
  Receive Date: 20240515
  Receipt Date: 20240515
  Transmission Date: 20240715
  Serious: No
  Sender: FDA-Public Use
  Company Number: None

PATIENT
  Age: 65 Year
  Sex: Female

DRUGS (1)
  1. ADBRY [Suspect]
     Active Substance: TRALOKINUMAB-LDRM
     Indication: Dermatitis atopic
     Dosage: OTHER QUANTITY : AS DIRECTED;?OTHER FREQUENCY : DAY 1,/EVERY 2 WKS;?
     Dates: start: 202404

REACTIONS (2)
  - Illness [None]
  - Therapy interrupted [None]
